FAERS Safety Report 14703119 (Version 1)
Quarter: 2018Q2

REPORT INFORMATION
  Report Type: Spontaneous
  Country: FR (occurrence: FR)
  Receive Date: 20180402
  Receipt Date: 20180402
  Transmission Date: 20180711
  Serious: Yes (Other)
  Sender: FDA-Public Use
  Company Number: FR-MERCK KGAA-2044891

PATIENT
  Age: 56 Year
  Sex: Female

DRUGS (3)
  1. LEVOTHYROX NF [Suspect]
     Active Substance: LEVOTHYROXINE SODIUM
  2. LEVOTHYROX NF [Suspect]
     Active Substance: LEVOTHYROXINE SODIUM
  3. NOVOTHYROX [Suspect]
     Active Substance: LEVOTHYROXINE SODIUM
     Indication: PRODUCT USED FOR UNKNOWN INDICATION

REACTIONS (21)
  - Impaired work ability [None]
  - Presyncope [None]
  - Fatigue [Not Recovered/Not Resolved]
  - Disturbance in attention [None]
  - Nausea [None]
  - Arthralgia [None]
  - Headache [None]
  - Colitis [None]
  - Dizziness [None]
  - Irritability [None]
  - Myalgia [None]
  - Weight increased [None]
  - Pollakiuria [None]
  - Insomnia [None]
  - Palpitations [None]
  - Arrhythmia [None]
  - Depression [Recovered/Resolved]
  - Mental fatigue [None]
  - Hot flush [None]
  - Dyspnoea [None]
  - Asthenia [None]

NARRATIVE: CASE EVENT DATE: 201706
